FAERS Safety Report 14768141 (Version 1)
Quarter: 2018Q2

REPORT INFORMATION
  Report Type: Spontaneous
  Country: US (occurrence: US)
  Receive Date: 20180410
  Receipt Date: 20180410
  Transmission Date: 20180711
  Serious: No
  Sender: FDA-Public Use
  Company Number: None

PATIENT
  Age: 18 Year
  Sex: Male

DRUGS (4)
  1. TORADOL [Suspect]
     Active Substance: KETOROLAC TROMETHAMINE
     Indication: ELECTROCONVULSIVE THERAPY
     Dosage: INTRAVENOUS (NOT OTHERWISE SPECIFIED)
     Route: 042
     Dates: start: 20180316, end: 20180410
  2. METHOHEXITAL 100 MG [Concomitant]
  3. VIIBRYD [Concomitant]
     Active Substance: VILAZODONE HYDROCHLORIDE
     Dates: start: 20180227
  4. SUCCINOYLCHOLINE 100 MG [Concomitant]

REACTIONS (3)
  - Rash [None]
  - Erythema [None]
  - Injection site rash [None]

NARRATIVE: CASE EVENT DATE: 20180406
